FAERS Safety Report 7542517-7 (Version None)
Quarter: 2011Q2

REPORT INFORMATION
  Report Type: 
  Country: None (occurrence: None)
  Receive Date: 20110613
  Receipt Date: 20110608
  Transmission Date: 20111010
  Serious: Yes (Hospitalization)
  Sender: FDA-Public Use
  Company Number: JP-EISAI INC-E2090-01609-SPO-JP

PATIENT
  Sex: Female

DRUGS (5)
  1. CIMETIDINE [Concomitant]
     Indication: RENAL CANCER
     Route: 048
     Dates: start: 20080101, end: 20100524
  2. MELOXICAM [Concomitant]
     Indication: RENAL CANCER
     Route: 048
     Dates: start: 20080101, end: 20100524
  3. BETAMETHASONE [Concomitant]
     Indication: BRAIN OEDEMA
     Route: 048
     Dates: start: 20100426, end: 20100524
  4. BIOLOGICAL PREPARATION [Concomitant]
     Indication: RENAL CANCER
     Dosage: 6 IU (1,000,000S)/DAY
     Route: 058
     Dates: start: 20080101, end: 20100524
  5. ZONISAMIDE [Suspect]
     Indication: EPILEPSY
     Route: 048
     Dates: start: 20100426, end: 20100517

REACTIONS (1)
  - TOXIC EPIDERMAL NECROLYSIS [None]
